FAERS Safety Report 22776913 (Version 3)
Quarter: 2023Q4

REPORT INFORMATION
  Report Type: Report from Study
  Country: CA (occurrence: CA)
  Receive Date: 20230802
  Receipt Date: 20231103
  Transmission Date: 20240110
  Serious: Yes (Other)
  Sender: FDA-Public Use
  Company Number: CA-OTSUKA-2017_015315

PATIENT
  Age: 42 Year
  Sex: Female
  Weight: 75.8 kg

DRUGS (20)
  1. TOLVAPTAN [Suspect]
     Active Substance: TOLVAPTAN
     Indication: Congenital cystic kidney disease
     Dosage: 45 MG, QD
     Route: 048
     Dates: start: 20170411, end: 201705
  2. TOLVAPTAN [Suspect]
     Active Substance: TOLVAPTAN
     Dosage: 15 MG, QD
     Route: 048
     Dates: start: 20170411, end: 201705
  3. TOLVAPTAN [Suspect]
     Active Substance: TOLVAPTAN
     Dosage: 15 MG, QD (AM)
     Route: 048
     Dates: start: 20170701
  4. TOLVAPTAN [Suspect]
     Active Substance: TOLVAPTAN
     Dosage: 15 MG, QD (PM)
     Route: 048
     Dates: start: 20170701
  5. TOLVAPTAN [Suspect]
     Active Substance: TOLVAPTAN
     Dosage: 30 MG, QD
     Route: 048
     Dates: start: 20170506
  6. TOLVAPTAN [Suspect]
     Active Substance: TOLVAPTAN
     Dosage: 15 MG, QD (IN THE MORNING)
     Route: 048
     Dates: start: 20221128
  7. TOLVAPTAN [Suspect]
     Active Substance: TOLVAPTAN
     Dosage: 15 MG, QD (8H LATER)
     Route: 048
     Dates: start: 20221128
  8. AVAPRO [Suspect]
     Active Substance: IRBESARTAN
     Indication: Hypertension
     Dosage: UNK
     Route: 065
  9. TRINTELLIX [Concomitant]
     Active Substance: VORTIOXETINE HYDROBROMIDE
     Indication: Product used for unknown indication
     Dosage: 1 DF, QD (WITH OR WITHOUT FOOD)
     Route: 065
     Dates: start: 20230416
  10. TRINTELLIX [Concomitant]
     Active Substance: VORTIOXETINE HYDROBROMIDE
     Dosage: 1 DF, QD (WITH OR WITHOUT FOOD)
     Route: 065
     Dates: start: 20221013
  11. AZITHROMYCIN [Concomitant]
     Active Substance: AZITHROMYCIN
     Indication: Product used for unknown indication
     Dosage: 2 DF, QD (FOR 3 DAY)
     Route: 065
     Dates: start: 20230406
  12. ZOLPIDEM TARTRATE [Concomitant]
     Active Substance: ZOLPIDEM TARTRATE
     Indication: Product used for unknown indication
     Dosage: 5 MG, AS NECESSARY (ONCE A DAY AT BEDTIME)
     Route: 060
     Dates: start: 20230320
  13. RIVA ATORVASTATIN [Concomitant]
     Indication: Product used for unknown indication
     Dosage: 1 DF, QD
     Route: 065
     Dates: start: 20230213
  14. COZAAR [Concomitant]
     Active Substance: LOSARTAN POTASSIUM
     Indication: Product used for unknown indication
     Dosage: 1 DF, BID (MORNING AND EVENING)
     Route: 065
     Dates: start: 20230213
  15. BUPROPION [Concomitant]
     Active Substance: BUPROPION
     Indication: Product used for unknown indication
     Dosage: 1 DF, QD (AT LUNCH)
     Route: 065
     Dates: start: 20230116
  16. AMLODIPINE BESYLATE [Concomitant]
     Active Substance: AMLODIPINE BESYLATE
     Indication: Product used for unknown indication
     Dosage: 1 DF, QD (AT BEDTIME)
     Route: 065
     Dates: start: 20221212
  17. FAMOTIDINE [Concomitant]
     Active Substance: FAMOTIDINE
     Indication: Product used for unknown indication
     Dosage: 10 MG, QD (1/2 TABLET AT LUNCH)
     Route: 065
     Dates: start: 20221114
  18. CLIOQUINOL\FLUMETHASONE [Concomitant]
     Active Substance: CLIOQUINOL\FLUMETHASONE
     Indication: Product used for unknown indication
     Dosage: UNK, BID (2 LOCAL APPLICATION ON THE LESIONS)
     Route: 065
     Dates: start: 20220818
  19. MOMETASONE [Concomitant]
     Active Substance: MOMETASONE
     Indication: Product used for unknown indication
     Dosage: UNK, AS NECESSARY (1 APPLICATION IN THE HEARING CHANNEL TWICE A DAY (10 DAY IF NEEDED))
     Route: 065
     Dates: start: 20220818
  20. FERROUS SULFATE [Concomitant]
     Active Substance: FERROUS SULFATE
     Indication: Product used for unknown indication
     Dosage: 2 DF, QD (AT BEDTIME)
     Route: 065
     Dates: start: 20220620

REACTIONS (9)
  - Urinary retention [Not Recovered/Not Resolved]
  - Renal impairment [Not Recovered/Not Resolved]
  - Ventricular extrasystoles [Recovered/Resolved]
  - Hypotension [Recovered/Resolved]
  - Fatigue [Recovered/Resolved]
  - Fatigue [Not Recovered/Not Resolved]
  - Dizziness [Recovered/Resolved]
  - Dehydration [Recovered/Resolved]
  - Dizziness [Recovered/Resolved]

NARRATIVE: CASE EVENT DATE: 20170613
